FAERS Safety Report 9011252 (Version 2)
Quarter: 2013Q1

REPORT INFORMATION
  Report Type: Spontaneous
  Country: US (occurrence: US)
  Receive Date: 20130109
  Receipt Date: 20130315
  Transmission Date: 20140127
  Serious: Yes (Hospitalization, Other)
  Sender: FDA-Public Use
  Company Number: US-BIOGENIDEC-2013BI001206

PATIENT
  Age: 31 Year
  Sex: Female

DRUGS (8)
  1. AVONEX [Suspect]
     Indication: MULTIPLE SCLEROSIS
     Route: 030
     Dates: start: 20080404, end: 200912
  2. AVONEX [Suspect]
     Indication: MULTIPLE SCLEROSIS
     Route: 030
     Dates: start: 20120606, end: 201210
  3. COPAXONE [Concomitant]
     Indication: MULTIPLE SCLEROSIS
     Dates: start: 20091227, end: 201002
  4. DILANTIN [Concomitant]
     Indication: CONVULSION
     Dates: start: 2006, end: 2011
  5. VALIUM [Concomitant]
     Indication: CONVULSION
     Dates: start: 2000
  6. VALIUM [Concomitant]
     Indication: MUSCLE SPASMS
     Dates: start: 2000
  7. CYMBALTA [Concomitant]
     Indication: DEPRESSION
  8. LORTAB [Concomitant]
     Indication: MIGRAINE

REACTIONS (4)
  - Pain [Recovered/Resolved]
  - Convulsion [Recovered/Resolved]
  - Optic neuropathy [Unknown]
  - Multiple sclerosis relapse [Recovered/Resolved]
